FAERS Safety Report 16784070 (Version 2)
Quarter: 2019Q3

REPORT INFORMATION
  Report Type: Spontaneous
  Country: US (occurrence: US)
  Receive Date: 20190909
  Receipt Date: 20190909
  Transmission Date: 20191005
  Serious: Yes (Other)
  Sender: FDA-Public Use
  Company Number: US-SA-2019SA245670

PATIENT
  Age: 56 Year
  Sex: Female

DRUGS (2)
  1. LEMTRADA [Suspect]
     Active Substance: ALEMTUZUMAB
     Dosage: UNK, UNK
     Route: 065
     Dates: start: 20160509
  2. LEMTRADA [Suspect]
     Active Substance: ALEMTUZUMAB
     Dosage: UNK UNK, UNK
     Route: 065
     Dates: start: 20170509

REACTIONS (3)
  - Immune thrombocytopenic purpura [Unknown]
  - Platelet count abnormal [Unknown]
  - Neutrophil count abnormal [Unknown]
